FAERS Safety Report 8862467 (Version 1)
Quarter: 2012Q4

REPORT INFORMATION
  Report Type: 
  Country: US (occurrence: US)
  Receive Date: 20121026
  Receipt Date: 20121026
  Transmission Date: 20130627
  Serious: Yes (Other)
  Sender: FDA-Public Use
  Company Number: US-ABBOTT-12P-163-0997568-00

PATIENT

DRUGS (2)
  1. HUMIRA [Suspect]
     Indication: PRODUCT USED FOR UNKNOWN INDICATION
  2. REMICADE [Concomitant]

REACTIONS (5)
  - Intestinal stenosis [Unknown]
  - Surgery [Unknown]
  - Drug ineffective [Unknown]
  - Crohn^s disease [Unknown]
  - Malaise [Unknown]
